FAERS Safety Report 9892217 (Version 2)
Quarter: 2014Q2

REPORT INFORMATION
  Report Type: Not Available
  Country: FR (occurrence: FR)
  Receive Date: 20140212
  Receipt Date: 20140401
  Transmission Date: 20141212
  Serious: Yes (Other)
  Sender: FDA-Public Use
  Company Number: FR-NAPPMUNDI-GBR-2014-0017014

PATIENT
  Age: 34 Year
  Sex: Male

DRUGS (2)
  1. OXYNORM, GELULE [Suspect]
     Indication: PRODUCT USED FOR UNKNOWN INDICATION
     Dosage: UNK
     Route: 048
     Dates: start: 201204, end: 201310
  2. EFFEXOR [Suspect]
     Indication: PRODUCT USED FOR UNKNOWN INDICATION
     Dosage: POSOLOGY UP TO 160 MG DAILY
     Dates: start: 2010

REACTIONS (4)
  - Teeth brittle [Not Recovered/Not Resolved]
  - Tooth discolouration [Not Recovered/Not Resolved]
  - Poor dental condition [Not Recovered/Not Resolved]
  - Tooth fracture [Not Recovered/Not Resolved]
